FAERS Safety Report 12213638 (Version 2)
Quarter: 2016Q2

REPORT INFORMATION
  Report Type: Spontaneous
  Country: JP (occurrence: JP)
  Receive Date: 20160328
  Receipt Date: 20160401
  Transmission Date: 20160815
  Serious: Yes (Other)
  Sender: FDA-Public Use
  Company Number: JP-SA-2016SA060006

PATIENT
  Age: 65 Year
  Sex: Male

DRUGS (4)
  1. FOLINIC ACID [Suspect]
     Active Substance: LEUCOVORIN
     Indication: PANCREATIC CARCINOMA
     Route: 065
  2. OXALIPLATIN. [Suspect]
     Active Substance: OXALIPLATIN
     Indication: PANCREATIC CARCINOMA
     Route: 065
  3. IRINOTECAN [Suspect]
     Active Substance: IRINOTECAN
     Indication: PANCREATIC CARCINOMA
     Route: 065
  4. FLUOROURACIL. [Suspect]
     Active Substance: FLUOROURACIL
     Indication: PANCREATIC CARCINOMA
     Route: 065

REACTIONS (8)
  - Neutropenia [Unknown]
  - Pneumoretroperitoneum [Unknown]
  - Diarrhoea [Unknown]
  - Interstitial lung disease [Unknown]
  - Pancreatic carcinoma [Unknown]
  - Deep vein thrombosis [Unknown]
  - Disease progression [Unknown]
  - Fatigue [Unknown]
